FAERS Safety Report 7424803-4 (Version None)
Quarter: 2011Q2

REPORT INFORMATION
  Report Type: 
  Country: None (occurrence: None)
  Receive Date: 20110419
  Receipt Date: 20100819
  Transmission Date: 20111010
  Serious: No
  Sender: FDA-Public Use
  Company Number: US-ABBOTT-10P-163-0665850-00

PATIENT
  Sex: Female
  Weight: 46.762 kg

DRUGS (1)
  1. LUPRON DEPOT-PED [Suspect]
     Indication: PRECOCIOUS PUBERTY
     Dates: start: 20090801

REACTIONS (7)
  - PYREXIA [None]
  - EYE DISORDER [None]
  - PAIN [None]
  - GAIT DISTURBANCE [None]
  - HEADACHE [None]
  - NODULE [None]
  - PAIN IN EXTREMITY [None]
